FAERS Safety Report 8581162-1 (Version None)
Quarter: 2012Q3

REPORT INFORMATION
  Report Type: 
  Country: None (occurrence: None)
  Receive Date: 20120809
  Receipt Date: 20120731
  Transmission Date: 20120928
  Serious: Yes (Life-Threatening)
  Sender: FDA-Public Use
  Company Number: US-JNJFOC-20120801870

PATIENT
  Sex: Female
  Weight: 93.8 kg

DRUGS (10)
  1. REMICADE [Suspect]
     Route: 042
     Dates: start: 20120514
  2. ANTIBIOTICS [Concomitant]
     Indication: INFLAMMATORY BOWEL DISEASE
  3. REMICADE [Suspect]
     Route: 042
     Dates: start: 20120605, end: 20120605
  4. MERCAPTOPURINE [Concomitant]
  5. PREDNISONE TAB [Concomitant]
  6. REMICADE [Suspect]
     Indication: INFLAMMATORY BOWEL DISEASE
     Route: 042
     Dates: start: 20120501
  7. TYLENOL [Concomitant]
  8. ALLOPURINOL [Concomitant]
  9. HYDROCORTISONE [Concomitant]
  10. MESALAMINE [Concomitant]

REACTIONS (2)
  - ANAPHYLACTIC REACTION [None]
  - INFUSION RELATED REACTION [None]
